FAERS Safety Report 16754685 (Version 1)
Quarter: 2019Q3

REPORT INFORMATION
  Report Type: Spontaneous
  Country: US (occurrence: US)
  Receive Date: 20190829
  Receipt Date: 20190829
  Transmission Date: 20191005
  Serious: No
  Sender: FDA-Public Use
  Company Number: US-PFIZER INC-2019369545

PATIENT
  Age: 60 Year
  Sex: Female
  Weight: 81.65 kg

DRUGS (2)
  1. EUCRISA [Suspect]
     Active Substance: CRISABOROLE
     Indication: HYPERSENSITIVITY
     Dosage: UNK, 2X/DAY
     Route: 061
     Dates: start: 201906
  2. EUCRISA [Suspect]
     Active Substance: CRISABOROLE
     Indication: BLISTER

REACTIONS (2)
  - Drug effective for unapproved indication [Unknown]
  - Off label use [Unknown]

NARRATIVE: CASE EVENT DATE: 201906
